FAERS Safety Report 6190894-4 (Version None)
Quarter: 2009Q2

REPORT INFORMATION
  Report Type: 
  Country: None (occurrence: None)
  Receive Date: 20090514
  Receipt Date: 20090505
  Transmission Date: 20091009
  Serious: Yes (Other)
  Sender: FDA-Public Use
  Company Number: GB-BAXTER-2009BH008099

PATIENT
  Age: 32 Year
  Sex: Female

DRUGS (1)
  1. SUPRANE [Suspect]
     Indication: GENERAL ANAESTHESIA
     Route: 055
     Dates: start: 20090420, end: 20090420

REACTIONS (6)
  - CHILLS [None]
  - FLUSHING [None]
  - HYPERSENSITIVITY [None]
  - MALAISE [None]
  - NAUSEA [None]
  - TACHYCARDIA [None]
